FAERS Safety Report 5704258-8 (Version None)
Quarter: 2008Q2

REPORT INFORMATION
  Report Type: 
  Country: None (occurrence: None)
  Receive Date: 20080414
  Receipt Date: 20080408
  Transmission Date: 20081010
  Serious: No
  Sender: FDA-Public Use
  Company Number: DE-AVENTIS-200711767DE

PATIENT
  Age: 23 Year
  Sex: Female

DRUGS (2)
  1. ARAVA [Suspect]
     Route: 048
     Dates: start: 20061122, end: 20060101
  2. ARAVA [Suspect]
     Dosage: DOSE: NOT REPORTED
     Route: 048
     Dates: start: 20060101, end: 20061201

REACTIONS (1)
  - DRUG EXPOSURE DURING PREGNANCY [None]
